FAERS Safety Report 24649571 (Version 2)
Quarter: 2024Q4

REPORT INFORMATION
  Report Type: Spontaneous
  Country: BG (occurrence: BG)
  Receive Date: 20241121
  Receipt Date: 20241217
  Transmission Date: 20250114
  Serious: No
  Sender: BIOGEN
  Company Number: BG-BIOGEN-2024BI01291181

PATIENT
  Age: 40 Year
  Sex: Male
  Weight: 85 kg

DRUGS (2)
  1. TECFIDERA [Suspect]
     Active Substance: DIMETHYL FUMARATE
     Indication: Multiple sclerosis
     Route: 050
     Dates: start: 202406, end: 202411
  2. TECFIDERA [Suspect]
     Active Substance: DIMETHYL FUMARATE
     Route: 050
     Dates: start: 202406, end: 202411

REACTIONS (2)
  - Multiple sclerosis [Recovered/Resolved with Sequelae]
  - Underdose [Recovered/Resolved]

NARRATIVE: CASE EVENT DATE: 20240601
